FAERS Safety Report 14782460 (Version 1)
Quarter: 2018Q2

REPORT INFORMATION
  Report Type: Report from Study
  Country: SI (occurrence: SI)
  Receive Date: 20180420
  Receipt Date: 20180420
  Transmission Date: 20180711
  Serious: Yes (Death, Other)
  Sender: FDA-Public Use
  Company Number: SI-ROCHE-2082170

PATIENT

DRUGS (2)
  1. CAPECITABINE. [Suspect]
     Active Substance: CAPECITABINE
     Indication: RECTAL CANCER
     Route: 048
  2. CAPECITABINE. [Suspect]
     Active Substance: CAPECITABINE
     Dosage: ON DAYS 1 TO 14 EVERY 3 WEEKS FOR 4 CYCLES
     Route: 048

REACTIONS (8)
  - Cardiac dysfunction [Unknown]
  - Diarrhoea [Unknown]
  - Cardiotoxicity [Unknown]
  - Death [Fatal]
  - Proctitis [Unknown]
  - Infection [Unknown]
  - Radiation skin injury [Unknown]
  - Leukopenia [Unknown]
